FAERS Safety Report 15642365 (Version 3)
Quarter: 2019Q1

REPORT INFORMATION
  Report Type: Report from Study
  Country: None (occurrence: US)
  Receive Date: 20181121
  Receipt Date: 20190108
  Transmission Date: 20190417
  Serious: Yes (Hospitalization)
  Sender: FDA-Public Use
  Company Number: US-ABBVIE-18K-163-2556824-00

PATIENT
  Age: 67 Year
  Sex: Male
  Weight: 127.12 kg

DRUGS (7)
  1. HUMIRA [Suspect]
     Active Substance: ADALIMUMAB
     Route: 058
     Dates: start: 201812
  2. HUMIRA [Suspect]
     Active Substance: ADALIMUMAB
     Indication: RHEUMATOID ARTHRITIS
     Route: 058
     Dates: start: 2006, end: 201810
  3. AMIODARONE [Concomitant]
     Active Substance: AMIODARONE
     Indication: ATRIAL FIBRILLATION
  4. PREDNISONE. [Concomitant]
     Active Substance: PREDNISONE
     Indication: RHEUMATOID ARTHRITIS
  5. WARFARIN [Concomitant]
     Active Substance: WARFARIN
     Indication: ANTICOAGULANT THERAPY
  6. METPROLOL [Concomitant]
     Active Substance: METOPROLOL
     Indication: HYPERTENSION
  7. PLAVIX [Concomitant]
     Active Substance: CLOPIDOGREL BISULFATE
     Indication: BLOOD CHOLESTEROL

REACTIONS (11)
  - Dyspnoea [Recovered/Resolved]
  - Cardiac valve vegetation [Recovering/Resolving]
  - Atrial fibrillation [Not Recovered/Not Resolved]
  - Wound infection [Unknown]
  - Endocarditis [Unknown]
  - Viral myocarditis [Not Recovered/Not Resolved]
  - Mitral valve incompetence [Recovered/Resolved]
  - Skin ulcer [Recovering/Resolving]
  - Renal disorder [Recovering/Resolving]
  - Vascular device infection [Recovering/Resolving]
  - Arthralgia [Recovered/Resolved]

NARRATIVE: CASE EVENT DATE: 2018
